FAERS Safety Report 17362109 (Version 1)
Quarter: 2020Q1

REPORT INFORMATION
  Report Type: Spontaneous
  Country: FR (occurrence: FR)
  Receive Date: 20200203
  Receipt Date: 20200203
  Transmission Date: 20200409
  Serious: Yes (Other)
  Sender: FDA-Public Use
  Company Number: FR-PFIZER INC-2020041488

PATIENT
  Age: 53 Year
  Sex: Female
  Weight: 76.5 kg

DRUGS (11)
  1. VENLAFAXINE HCL [Suspect]
     Active Substance: VENLAFAXINE HYDROCHLORIDE
     Indication: AFFECTIVE DISORDER
     Dosage: 150 MG, 1X/DAY
     Route: 048
     Dates: start: 20191029, end: 20191128
  2. NOCTAMIDE [Suspect]
     Active Substance: LORMETAZEPAM
     Dosage: 1 DF, 1X/DAY
     Route: 048
     Dates: end: 20191128
  3. BROMAZEPAM [Suspect]
     Active Substance: BROMAZEPAM
     Indication: DEPRESSION
     Dosage: 9 MG, 1X/DAY
     Route: 048
     Dates: end: 20191128
  4. OESTRODOSE [Concomitant]
     Active Substance: ESTRADIOL
     Dosage: 1 DF, 1X/DAY
     Route: 003
  5. PHENERGAN [Suspect]
     Active Substance: PROMETHAZINE HYDROCHLORIDE
     Dosage: 50 MG, 1X/DAY
     Route: 048
     Dates: start: 20191101, end: 20191128
  6. ESTIMA GE [Concomitant]
     Dosage: 1 DF, 1X/DAY
     Route: 048
  7. SULFARLEM [Suspect]
     Active Substance: ANETHOLTRITHION
     Dosage: 100 MG, 1X/DAY
     Route: 048
     Dates: start: 20191101, end: 20191128
  8. FORLAX [Suspect]
     Active Substance: POLYETHYLENE GLYCOL 4000
     Dosage: 6 DF, 1X/DAY
     Route: 048
     Dates: start: 20191107, end: 20191128
  9. LUBENTYL [Suspect]
     Active Substance: MINERAL OIL
     Dosage: 3 DF, 1X/DAY
     Route: 048
     Dates: start: 20191114, end: 20191128
  10. NORSET [Suspect]
     Active Substance: MIRTAZAPINE
     Indication: AFFECTIVE DISORDER
     Dosage: 7.5 MG, 1X/DAY
     Route: 048
     Dates: end: 20191123
  11. SERESTA [Concomitant]
     Active Substance: OXAZEPAM
     Indication: DEPRESSION
     Dosage: 105 MG, 1X/DAY
     Route: 048
     Dates: start: 20191128, end: 20191201

REACTIONS (1)
  - Hepatocellular injury [Recovering/Resolving]

NARRATIVE: CASE EVENT DATE: 20191127
